FAERS Safety Report 24591001 (Version 1)
Quarter: 2024Q4

REPORT INFORMATION
  Report Type: Spontaneous
  Country: AU (occurrence: AU)
  Receive Date: 20241107
  Receipt Date: 20241107
  Transmission Date: 20250114
  Serious: Yes (Hospitalization)
  Sender: AMGEN
  Company Number: AU-Vifor (International) Inc.-VIT-2024-09536

PATIENT
  Age: 16 Year
  Sex: Male

DRUGS (2)
  1. TAVNEOS [Suspect]
     Active Substance: AVACOPAN
     Indication: Anti-neutrophil cytoplasmic antibody positive vasculitis
     Dosage: INITIAL DOSE
     Route: 065
  2. TAVNEOS [Suspect]
     Active Substance: AVACOPAN
     Dosage: AFTER INDUCTION
     Route: 065

REACTIONS (11)
  - Productive cough [Unknown]
  - Ear, nose and throat disorder [Unknown]
  - Pulmonary mass [Not Recovered/Not Resolved]
  - Headache [Unknown]
  - Malaise [Unknown]
  - Pyrexia [Unknown]
  - Inflammatory marker increased [Unknown]
  - Haematuria [Unknown]
  - Proteinuria [Unknown]
  - Condition aggravated [Unknown]
  - Off label use [Unknown]
